FAERS Safety Report 9336916 (Version 1)
Quarter: 2013Q2

REPORT INFORMATION
  Report Type: Other
  Country: GB (occurrence: GB)
  Receive Date: 20130607
  Receipt Date: 20130607
  Transmission Date: 20140414
  Serious: Yes (Other)
  Sender: FDA-Public Use
  Company Number: GB-BRISTOL-MYERS SQUIBB COMPANY-18948935

PATIENT
  Age: 39 Year
  Sex: Female

DRUGS (2)
  1. TRIAMCINOLONE ACE INJ 40 MG [Suspect]
     Indication: HIV INFECTION
  2. KALETRA [Interacting]
     Indication: HIV INFECTION
     Dosage: LOPINAVIR 200MG/RITONAVIR50MG

REACTIONS (2)
  - Cushing^s syndrome [Unknown]
  - Drug interaction [Unknown]
